FAERS Safety Report 11799772 (Version 2)
Quarter: 2015Q4

REPORT INFORMATION
  Report Type: Report from Study
  Country: US (occurrence: US)
  Receive Date: 20151203
  Receipt Date: 20151229
  Transmission Date: 20160305
  Serious: Yes (Death, Other)
  Sender: FDA-Public Use
  Company Number: US-GILEAD-2015-0185627

PATIENT
  Age: 60 Year
  Sex: Female

DRUGS (4)
  1. VELETRI [Concomitant]
     Active Substance: EPOPROSTENOL
  2. REVATIO [Concomitant]
     Active Substance: SILDENAFIL CITRATE
  3. AMBRISENTAN [Suspect]
     Active Substance: AMBRISENTAN
     Indication: PULMONARY HYPERTENSION
     Dosage: 10 MG, QD
     Route: 065
     Dates: start: 20120523
  4. AMBRISENTAN [Suspect]
     Active Substance: AMBRISENTAN
     Indication: TOXICITY TO VARIOUS AGENTS

REACTIONS (1)
  - Sepsis [Fatal]
